FAERS Safety Report 5091020-5 (Version None)
Quarter: 2006Q3

REPORT INFORMATION
  Report Type: 
  Country: None (occurrence: None)
  Receive Date: 20060829
  Receipt Date: 20051109
  Transmission Date: 20061208
  Serious: No
  Sender: FDA-Public Use
  Company Number: S2005US17153

PATIENT
  Age: 69 Year
  Sex: Male

DRUGS (3)
  1. ACYCLOVIR [Suspect]
     Dosage: 500MG UNKNOWN
     Route: 048
  2. DILAUDID [Suspect]
     Dosage: 2MG UNKNOWN
     Route: 065
  3. PROMETHAZINE [Suspect]
     Dosage: 25MG UNKNOWN
     Route: 065

REACTIONS (2)
  - MEMORY IMPAIRMENT [None]
  - NEGATIVISM [None]
